FAERS Safety Report 19996149 (Version 1)
Quarter: 2021Q4

REPORT INFORMATION
  Report Type: Spontaneous
  Country: US (occurrence: US)
  Receive Date: 20211026
  Receipt Date: 20211026
  Transmission Date: 20220303
  Serious: No
  Sender: FDA-Public Use
  Company Number: US-DRREDDYS-SPO/USA/21/0142689

PATIENT
  Age: 15 Year
  Sex: Male
  Weight: 54 kg

DRUGS (4)
  1. ZENATANE [Suspect]
     Active Substance: ISOTRETINOIN
     Indication: Acne
     Dates: start: 20210712, end: 20211013
  2. ZENATANE [Suspect]
     Active Substance: ISOTRETINOIN
  3. ZENATANE [Suspect]
     Active Substance: ISOTRETINOIN
  4. VITAMINS [Concomitant]
     Active Substance: VITAMINS
     Indication: Product used for unknown indication

REACTIONS (2)
  - Haematochezia [Unknown]
  - Fatigue [Unknown]
